FAERS Safety Report 5528399-3 (Version None)
Quarter: 2007Q4

REPORT INFORMATION
  Report Type: 
  Country: None (occurrence: None)
  Receive Date: 20071123
  Receipt Date: 20071107
  Transmission Date: 20080405
  Serious: Yes (Hospitalization)
  Sender: FDA-Public Use
  Company Number: ALA_00029_2007

PATIENT
  Age: 13 Year
  Sex: Female

DRUGS (5)
  1. MESALAMINE [Suspect]
     Indication: DRUG USE FOR UNKNOWN INDICATION
     Dosage: DF
  2. DICLOFENAC SODIUM [Suspect]
     Indication: DRUG USE FOR UNKNOWN INDICATION
     Dosage: 50 MG 4X RECTAL
     Route: 054
  3. CEFOTAXIME SODIUM [Suspect]
     Indication: DRUG USE FOR UNKNOWN INDICATION
     Dosage: DF
  4. HYDROCORTISONE [Concomitant]
  5. METRONIDAZOLE [Concomitant]

REACTIONS (9)
  - CROHN'S DISEASE [None]
  - DEHYDRATION [None]
  - HAEMODIALYSIS [None]
  - HAEMOGLOBIN DECREASED [None]
  - NEPHRITIS INTERSTITIAL [None]
  - RENAL CORTICAL NECROSIS [None]
  - RENAL FAILURE ACUTE [None]
  - RENAL INFARCT [None]
  - RENAL TUBULAR NECROSIS [None]
